FAERS Safety Report 6581227-X (Version None)
Quarter: 2010Q1

REPORT INFORMATION
  Report Type: 
  Country: None (occurrence: None)
  Receive Date: 20100215
  Receipt Date: 20100205
  Transmission Date: 20100710
  Serious: Yes (Hospitalization)
  Sender: FDA-Public Use
  Company Number: JP-ABBOTT-10P-087-0624610-00

PATIENT
  Age: 33 Year
  Sex: Male

DRUGS (2)
  1. CYCLOSPORINE [Suspect]
     Indication: COLITIS ULCERATIVE
  2. CYCLOSPORINE [Suspect]
     Indication: PEMPHIGOID

REACTIONS (2)
  - ENCEPHALOPATHY [None]
  - STATUS EPILEPTICUS [None]
